FAERS Safety Report 11685749 (Version 2)
Quarter: 2015Q4

REPORT INFORMATION
  Report Type: Spontaneous
  Country: AT (occurrence: AT)
  Receive Date: 20151030
  Receipt Date: 20151111
  Transmission Date: 20160304
  Serious: Yes (Other)
  Sender: FDA-Public Use
  Company Number: AT-INCYTE CORPORATION-2015IN005500

PATIENT
  Sex: Female

DRUGS (6)
  1. JAKAFI [Suspect]
     Active Substance: RUXOLITINIB
     Dosage: 30 MG, QD
     Route: 065
     Dates: start: 20141217, end: 20141224
  2. JAKAFI [Suspect]
     Active Substance: RUXOLITINIB
     Dosage: UNK
     Route: 065
     Dates: start: 20150720
  3. JAKAFI [Suspect]
     Active Substance: RUXOLITINIB
     Dosage: 10 MG, QD
     Route: 065
     Dates: start: 20150211
  4. JAKAFI [Suspect]
     Active Substance: RUXOLITINIB
     Dosage: 5 MG, QD
     Route: 065
     Dates: start: 20150401
  5. JAKAFI [Suspect]
     Active Substance: RUXOLITINIB
     Indication: POLYCYTHAEMIA VERA
     Dosage: 20 MG, QD
     Route: 065
     Dates: start: 20141127
  6. JAKAFI [Suspect]
     Active Substance: RUXOLITINIB
     Dosage: 5 MG, QD (10 MG - 2 DAYS PER WEEK)
     Route: 065
     Dates: start: 20150417

REACTIONS (11)
  - Platelet count decreased [Unknown]
  - White blood cell count decreased [Unknown]
  - Toxic anterior segment syndrome [Unknown]
  - Haematoma [Unknown]
  - Haemoglobin decreased [Unknown]
  - Retroperitoneal haematoma [Unknown]
  - Cytopenia [Unknown]
  - Hypertension [Unknown]
  - Myelofibrosis [Unknown]
  - Arthralgia [Unknown]
  - Abdominal pain [Unknown]

NARRATIVE: CASE EVENT DATE: 20141211
